FAERS Safety Report 18614790 (Version 1)
Quarter: 2020Q4

REPORT INFORMATION
  Report Type: Spontaneous
  Country: US (occurrence: US)
  Receive Date: 20201215
  Receipt Date: 20201215
  Transmission Date: 20210114
  Serious: No
  Sender: FDA-Public Use
  Company Number: NVSC2020US327389

PATIENT
  Sex: Female
  Weight: 68.03 kg

DRUGS (6)
  1. MINIVELLE [Suspect]
     Active Substance: ESTRADIOL
     Indication: POOR QUALITY SLEEP
     Dosage: 0.5 MG (3 YEARS)
     Route: 065
     Dates: start: 2015, end: 201811
  2. PROGESTERONE. [Concomitant]
     Active Substance: PROGESTERONE
     Indication: VAGINAL HAEMORRHAGE
     Dosage: UNK (USED AS VAGINAL SUPPOSITORY, REPORTS USING A 12-DAY REGIMEN ONCE EVERY 3 MONTHS)
     Route: 048
  3. ESTRADIOL. [Suspect]
     Active Substance: ESTRADIOL
     Dosage: 0.037 MG (2 WEEKS)
     Route: 065
     Dates: start: 202011
  4. ESTRADIOL. [Suspect]
     Active Substance: ESTRADIOL
     Dosage: 0.037 MG (APPROXIMATELY 2 YEARS)
     Route: 065
     Dates: start: 201811, end: 202010
  5. ESTRADIOL. [Suspect]
     Active Substance: ESTRADIOL
     Dosage: 0.025 MG
     Route: 065
     Dates: start: 20201013, end: 202011
  6. ESTRADIOL. [Suspect]
     Active Substance: ESTRADIOL
     Indication: POOR QUALITY SLEEP
     Dosage: 0.05 MG(OR 0.0375MG, STARTED 3 TO 4 YEARS AGO)
     Route: 065

REACTIONS (4)
  - Product availability issue [Unknown]
  - Drug ineffective [Unknown]
  - Metrorrhagia [Unknown]
  - Poor quality sleep [Unknown]
